FAERS Safety Report 5167066-5 (Version None)
Quarter: 2006Q4

REPORT INFORMATION
  Report Type: 
  Country: None (occurrence: None)
  Receive Date: 20061129
  Receipt Date: 20061117
  Transmission Date: 20070319
  Serious: Yes (Hospitalization, Other)
  Sender: FDA-Public Use
  Company Number: 2006139273

PATIENT
  Age: 3 Year
  Sex: Male

DRUGS (1)
  1. VFEND [Suspect]
     Indication: FUNGAL INFECTION
     Dosage: 1 TABLET + HALF; 3 TABLET (2 IN 1 D), ORAL
     Route: 048
     Dates: start: 20050101

REACTIONS (3)
  - CEREBRAL FUNGAL INFECTION [None]
  - DISEASE RECURRENCE [None]
  - DRUG INEFFECTIVE [None]
